FAERS Safety Report 8276796-8 (Version None)
Quarter: 2012Q2

REPORT INFORMATION
  Report Type: 
  Country: None (occurrence: None)
  Receive Date: 20120412
  Receipt Date: 20120404
  Transmission Date: 20120825
  Serious: Yes (Hospitalization)
  Sender: FDA-Public Use
  Company Number: US-BAYER-2011-085318

PATIENT
  Age: 47 Year
  Sex: Female
  Weight: 135.69 kg

DRUGS (8)
  1. YAZ [Suspect]
     Indication: CONTRACEPTION
     Dosage: UNK
     Dates: start: 20061216, end: 20090501
  2. AMOXICILLIN AND CLAVULANATE POTASSIUM [Concomitant]
     Dosage: UNK
     Dates: start: 20090331
  3. MOTRIN [Concomitant]
     Indication: PAIN
     Dosage: 800 MG, EVERY 8 HRS AS NEEDED
     Route: 048
  4. ACIPHEX [Concomitant]
     Indication: GASTROOESOPHAGEAL REFLUX DISEASE
     Dosage: 20 MG, UNK
     Route: 048
     Dates: start: 20030527, end: 20100104
  5. BETAMETH DIPROPIONATE AUGMENTED [Concomitant]
     Dosage: 0.05 %, BID
  6. YASMIN [Suspect]
     Indication: CONTRACEPTION
     Dosage: UNK
     Dates: start: 20050218, end: 20061113
  7. AUGMENTIN '125' [Concomitant]
     Indication: SINUSITIS
     Dosage: 875 MG, BID
     Route: 048
     Dates: start: 20090331
  8. POLYTRIM [Concomitant]
     Indication: CONJUNCTIVITIS
     Dosage: ONE DROP EACH EYE 4 TIMES DAILY
     Dates: start: 20090331

REACTIONS (10)
  - INJURY [None]
  - FEAR [None]
  - DYSPNOEA [None]
  - STRESS [None]
  - DEEP VEIN THROMBOSIS [None]
  - EMOTIONAL DISTRESS [None]
  - CONTUSION [None]
  - ANXIETY [None]
  - PULMONARY EMBOLISM [None]
  - PAIN [None]
